FAERS Safety Report 12842578 (Version 51)
Quarter: 2022Q4

REPORT INFORMATION
  Report Type: Spontaneous
  Country: CA (occurrence: None)
  Receive Date: 20161013
  Receipt Date: 20221227
  Transmission Date: 20230113
  Serious: Yes (Hospitalization, Disabling, Other)
  Sender: FDA-Public Use
  Company Number: CA-ORION CORPORATION ORION PHARMA-TREX2016-1958

PATIENT
  Age: 63 Year
  Sex: Female

DRUGS (422)
  1. METHOTREXATE [Suspect]
     Active Substance: METHOTREXATE
     Indication: Rheumatoid arthritis
     Dosage: CYCLIC
     Route: 048
  2. METHOTREXATE [Suspect]
     Active Substance: METHOTREXATE
     Route: 048
  3. METHOTREXATE [Suspect]
     Active Substance: METHOTREXATE
     Route: 048
  4. METHOTREXATE [Suspect]
     Active Substance: METHOTREXATE
     Route: 048
  5. METHOTREXATE [Suspect]
     Active Substance: METHOTREXATE
     Route: 048
  6. METHOTREXATE [Suspect]
     Active Substance: METHOTREXATE
     Route: 048
  7. METHOTREXATE [Suspect]
     Active Substance: METHOTREXATE
     Route: 048
  8. METHOTREXATE [Suspect]
     Active Substance: METHOTREXATE
     Route: 048
  9. METHOTREXATE [Suspect]
     Active Substance: METHOTREXATE
     Route: 048
  10. METHOTREXATE [Suspect]
     Active Substance: METHOTREXATE
     Dosage: CYCLIC
     Route: 048
  11. METHOTREXATE [Suspect]
     Active Substance: METHOTREXATE
     Route: 048
  12. METHOTREXATE [Suspect]
     Active Substance: METHOTREXATE
     Route: 048
  13. METHOTREXATE [Suspect]
     Active Substance: METHOTREXATE
     Route: 048
  14. METHOTREXATE [Suspect]
     Active Substance: METHOTREXATE
     Route: 048
  15. METHOTREXATE [Suspect]
     Active Substance: METHOTREXATE
     Route: 048
  16. METHOTREXATE [Suspect]
     Active Substance: METHOTREXATE
     Route: 048
  17. METHOTREXATE [Suspect]
     Active Substance: METHOTREXATE
     Route: 048
  18. METHOTREXATE [Suspect]
     Active Substance: METHOTREXATE
     Route: 048
  19. METHOTREXATE [Suspect]
     Active Substance: METHOTREXATE
     Route: 048
  20. METHOTREXATE [Suspect]
     Active Substance: METHOTREXATE
     Route: 048
  21. METHOTREXATE [Suspect]
     Active Substance: METHOTREXATE
     Route: 048
  22. METHOTREXATE [Suspect]
     Active Substance: METHOTREXATE
     Route: 048
  23. METHOTREXATE [Suspect]
     Active Substance: METHOTREXATE
     Route: 048
  24. METHOTREXATE [Suspect]
     Active Substance: METHOTREXATE
     Route: 048
  25. METHOTREXATE [Suspect]
     Active Substance: METHOTREXATE
     Route: 048
  26. METHOTREXATE [Suspect]
     Active Substance: METHOTREXATE
     Route: 065
  27. METHOTREXATE [Suspect]
     Active Substance: METHOTREXATE
     Route: 048
  28. METHOTREXATE [Suspect]
     Active Substance: METHOTREXATE
     Route: 048
  29. METHOTREXATE [Suspect]
     Active Substance: METHOTREXATE
     Route: 048
  30. METHOTREXATE [Suspect]
     Active Substance: METHOTREXATE
     Route: 048
  31. METHOTREXATE [Suspect]
     Active Substance: METHOTREXATE
     Route: 048
  32. METHOTREXATE [Suspect]
     Active Substance: METHOTREXATE
     Route: 048
  33. METHOTREXATE [Suspect]
     Active Substance: METHOTREXATE
     Route: 048
  34. METHOTREXATE [Suspect]
     Active Substance: METHOTREXATE
     Route: 048
  35. METHOTREXATE [Suspect]
     Active Substance: METHOTREXATE
     Route: 048
  36. METHOTREXATE [Suspect]
     Active Substance: METHOTREXATE
     Dosage: CYCLICAL
     Route: 065
  37. METHOTREXATE [Suspect]
     Active Substance: METHOTREXATE
     Route: 048
  38. METHOTREXATE [Suspect]
     Active Substance: METHOTREXATE
     Route: 048
  39. METHOTREXATE [Suspect]
     Active Substance: METHOTREXATE
     Route: 048
  40. METHOTREXATE [Suspect]
     Active Substance: METHOTREXATE
     Route: 048
  41. METHOTREXATE [Suspect]
     Active Substance: METHOTREXATE
     Route: 048
  42. METHOTREXATE [Suspect]
     Active Substance: METHOTREXATE
     Route: 013
  43. METHOTREXATE [Suspect]
     Active Substance: METHOTREXATE
     Route: 065
  44. METHOTREXATE [Suspect]
     Active Substance: METHOTREXATE
     Route: 048
  45. METHOTREXATE [Suspect]
     Active Substance: METHOTREXATE
     Route: 065
  46. METHOTREXATE [Suspect]
     Active Substance: METHOTREXATE
     Route: 065
  47. METHOTREXATE [Suspect]
     Active Substance: METHOTREXATE
     Route: 048
  48. METHOTREXATE [Suspect]
     Active Substance: METHOTREXATE
     Route: 048
  49. PANTOPRAZOLE SODIUM [Suspect]
     Active Substance: PANTOPRAZOLE SODIUM
     Indication: Rheumatoid arthritis
     Route: 048
  50. PANTOPRAZOLE SODIUM [Suspect]
     Active Substance: PANTOPRAZOLE SODIUM
     Route: 065
  51. PANTOPRAZOLE SODIUM [Suspect]
     Active Substance: PANTOPRAZOLE SODIUM
     Route: 065
  52. PANTOPRAZOLE SODIUM [Suspect]
     Active Substance: PANTOPRAZOLE SODIUM
     Route: 065
  53. PANTOPRAZOLE SODIUM [Suspect]
     Active Substance: PANTOPRAZOLE SODIUM
     Route: 048
  54. PANTOPRAZOLE SODIUM [Suspect]
     Active Substance: PANTOPRAZOLE SODIUM
     Route: 065
  55. PANTOPRAZOLE SODIUM [Suspect]
     Active Substance: PANTOPRAZOLE SODIUM
     Route: 065
  56. PANTOPRAZOLE SODIUM [Suspect]
     Active Substance: PANTOPRAZOLE SODIUM
     Route: 048
  57. PANTOPRAZOLE SODIUM [Suspect]
     Active Substance: PANTOPRAZOLE SODIUM
     Route: 065
  58. PANTOPRAZOLE SODIUM [Suspect]
     Active Substance: PANTOPRAZOLE SODIUM
     Route: 065
  59. PANTOPRAZOLE SODIUM [Suspect]
     Active Substance: PANTOPRAZOLE SODIUM
     Route: 065
  60. PANTOPRAZOLE SODIUM [Suspect]
     Active Substance: PANTOPRAZOLE SODIUM
     Route: 065
  61. PANTOPRAZOLE SODIUM [Suspect]
     Active Substance: PANTOPRAZOLE SODIUM
     Route: 065
  62. PANTOPRAZOLE SODIUM [Suspect]
     Active Substance: PANTOPRAZOLE SODIUM
     Route: 065
  63. FOLIC ACID [Suspect]
     Active Substance: FOLIC ACID
     Indication: Product used for unknown indication
     Dosage: 2 TIMES/WEEK
     Route: 065
  64. FOLIC ACID [Suspect]
     Active Substance: FOLIC ACID
     Dosage: 2 TIMES/WEEK
     Route: 065
  65. NAPROXEN [Suspect]
     Active Substance: NAPROXEN
     Indication: Rheumatoid arthritis
     Route: 048
  66. NAPROXEN [Suspect]
     Active Substance: NAPROXEN
     Route: 048
     Dates: start: 20140109
  67. NAPROXEN [Suspect]
     Active Substance: NAPROXEN
     Route: 048
  68. NAPROXEN [Suspect]
     Active Substance: NAPROXEN
     Route: 048
  69. NAPROXEN [Suspect]
     Active Substance: NAPROXEN
     Route: 065
  70. NAPROXEN [Suspect]
     Active Substance: NAPROXEN
     Route: 048
  71. NAPROXEN [Suspect]
     Active Substance: NAPROXEN
     Route: 048
  72. NAPROXEN [Suspect]
     Active Substance: NAPROXEN
     Route: 048
  73. NAPROXEN [Suspect]
     Active Substance: NAPROXEN
     Route: 048
  74. ASCORBIC ACID\FERROUS FUMARATE\FOLIC ACID [Suspect]
     Active Substance: ASCORBIC ACID\FERROUS FUMARATE\FOLIC ACID
     Indication: Product used for unknown indication
     Route: 065
  75. ASCORBIC ACID\FERROUS FUMARATE\FOLIC ACID [Suspect]
     Active Substance: ASCORBIC ACID\FERROUS FUMARATE\FOLIC ACID
     Route: 065
  76. ASCORBIC ACID\FERROUS FUMARATE\FOLIC ACID [Suspect]
     Active Substance: ASCORBIC ACID\FERROUS FUMARATE\FOLIC ACID
     Route: 065
  77. ASCORBIC ACID\FERROUS FUMARATE\FOLIC ACID [Suspect]
     Active Substance: ASCORBIC ACID\FERROUS FUMARATE\FOLIC ACID
     Route: 065
  78. ASCORBIC ACID\FERROUS FUMARATE\FOLIC ACID [Suspect]
     Active Substance: ASCORBIC ACID\FERROUS FUMARATE\FOLIC ACID
     Route: 065
  79. SULFASALAZINE [Suspect]
     Active Substance: SULFASALAZINE
     Indication: Rheumatoid arthritis
     Route: 048
  80. SULFASALAZINE [Suspect]
     Active Substance: SULFASALAZINE
     Route: 048
  81. SULFASALAZINE [Suspect]
     Active Substance: SULFASALAZINE
     Route: 048
  82. SULFASALAZINE [Suspect]
     Active Substance: SULFASALAZINE
     Route: 048
  83. SULFASALAZINE [Suspect]
     Active Substance: SULFASALAZINE
     Route: 048
  84. SULFASALAZINE [Suspect]
     Active Substance: SULFASALAZINE
     Route: 048
  85. SULFASALAZINE [Suspect]
     Active Substance: SULFASALAZINE
     Route: 065
  86. SULFASALAZINE [Suspect]
     Active Substance: SULFASALAZINE
     Route: 048
  87. SULFASALAZINE [Suspect]
     Active Substance: SULFASALAZINE
     Route: 048
  88. SULFASALAZINE [Suspect]
     Active Substance: SULFASALAZINE
     Route: 048
  89. SULFASALAZINE [Suspect]
     Active Substance: SULFASALAZINE
     Route: 048
  90. SULFASALAZINE [Suspect]
     Active Substance: SULFASALAZINE
     Route: 048
  91. SULFASALAZINE [Suspect]
     Active Substance: SULFASALAZINE
     Route: 065
  92. PLAQUENIL [Suspect]
     Active Substance: HYDROXYCHLOROQUINE SULFATE
     Indication: Rheumatoid arthritis
     Route: 065
  93. PLAQUENIL [Suspect]
     Active Substance: HYDROXYCHLOROQUINE SULFATE
     Route: 065
  94. PLAQUENIL [Suspect]
     Active Substance: HYDROXYCHLOROQUINE SULFATE
     Route: 065
  95. PLAQUENIL [Suspect]
     Active Substance: HYDROXYCHLOROQUINE SULFATE
     Route: 065
  96. PLAQUENIL [Suspect]
     Active Substance: HYDROXYCHLOROQUINE SULFATE
     Route: 065
  97. PLAQUENIL [Suspect]
     Active Substance: HYDROXYCHLOROQUINE SULFATE
     Route: 065
  98. PLAQUENIL [Suspect]
     Active Substance: HYDROXYCHLOROQUINE SULFATE
     Route: 065
  99. PLAQUENIL [Suspect]
     Active Substance: HYDROXYCHLOROQUINE SULFATE
     Route: 065
  100. ARAVA [Suspect]
     Active Substance: LEFLUNOMIDE
     Indication: Rheumatoid arthritis
     Route: 048
  101. ARAVA [Suspect]
     Active Substance: LEFLUNOMIDE
     Route: 048
  102. ARAVA [Suspect]
     Active Substance: LEFLUNOMIDE
     Route: 048
  103. ARAVA [Suspect]
     Active Substance: LEFLUNOMIDE
     Route: 065
  104. ARAVA [Suspect]
     Active Substance: LEFLUNOMIDE
     Route: 048
  105. ARAVA [Suspect]
     Active Substance: LEFLUNOMIDE
     Route: 048
  106. ARAVA [Suspect]
     Active Substance: LEFLUNOMIDE
     Dosage: UNIT NOT AVAILABLE
     Route: 065
  107. ARAVA [Suspect]
     Active Substance: LEFLUNOMIDE
     Route: 065
  108. ENBREL [Suspect]
     Active Substance: ETANERCEPT
     Indication: Rheumatoid arthritis
     Route: 058
  109. ENBREL [Suspect]
     Active Substance: ETANERCEPT
     Indication: Uveitis
     Route: 058
  110. ENBREL [Suspect]
     Active Substance: ETANERCEPT
     Indication: Juvenile idiopathic arthritis
     Route: 058
  111. HUMIRA [Suspect]
     Active Substance: ADALIMUMAB
     Indication: Rheumatoid arthritis
     Route: 058
  112. HUMIRA [Suspect]
     Active Substance: ADALIMUMAB
     Indication: Uveitis
     Route: 058
  113. HUMIRA [Suspect]
     Active Substance: ADALIMUMAB
     Indication: Juvenile idiopathic arthritis
     Route: 058
  114. HUMIRA [Suspect]
     Active Substance: ADALIMUMAB
     Route: 058
  115. HUMIRA [Suspect]
     Active Substance: ADALIMUMAB
     Route: 065
  116. HUMIRA [Suspect]
     Active Substance: ADALIMUMAB
     Route: 065
  117. HUMIRA [Suspect]
     Active Substance: ADALIMUMAB
     Route: 058
  118. HUMIRA [Suspect]
     Active Substance: ADALIMUMAB
     Route: 065
  119. ORENCIA [Suspect]
     Active Substance: ABATACEPT
     Indication: Rheumatoid arthritis
     Route: 065
  120. ORENCIA [Suspect]
     Active Substance: ABATACEPT
     Route: 042
  121. ORENCIA [Suspect]
     Active Substance: ABATACEPT
     Route: 042
  122. ORENCIA [Suspect]
     Active Substance: ABATACEPT
     Route: 065
  123. ORENCIA [Suspect]
     Active Substance: ABATACEPT
     Route: 065
  124. ORENCIA [Suspect]
     Active Substance: ABATACEPT
     Route: 065
  125. ORENCIA [Suspect]
     Active Substance: ABATACEPT
     Route: 065
  126. ORENCIA [Suspect]
     Active Substance: ABATACEPT
     Route: 065
  127. ORENCIA [Suspect]
     Active Substance: ABATACEPT
     Route: 065
  128. ORENCIA [Suspect]
     Active Substance: ABATACEPT
     Route: 042
  129. ORENCIA [Suspect]
     Active Substance: ABATACEPT
     Route: 042
  130. ORENCIA [Suspect]
     Active Substance: ABATACEPT
     Route: 065
  131. ADALIMUMAB [Suspect]
     Active Substance: ADALIMUMAB
     Indication: Rheumatoid arthritis
     Route: 058
  132. ADALIMUMAB [Suspect]
     Active Substance: ADALIMUMAB
     Route: 058
  133. ADALIMUMAB [Suspect]
     Active Substance: ADALIMUMAB
     Route: 058
  134. ABATACEPT [Suspect]
     Active Substance: ABATACEPT
     Indication: Product used for unknown indication
     Route: 065
  135. ASCORBIC ACID [Suspect]
     Active Substance: ASCORBIC ACID
     Indication: Product used for unknown indication
     Route: 065
  136. ASCORBIC ACID [Suspect]
     Active Substance: ASCORBIC ACID
     Route: 065
  137. ASCORBIC ACID [Suspect]
     Active Substance: ASCORBIC ACID
     Route: 065
  138. ASCORBIC ACID [Suspect]
     Active Substance: ASCORBIC ACID
     Route: 065
  139. ASCORBIC ACID [Suspect]
     Active Substance: ASCORBIC ACID
     Route: 065
  140. ASCORBIC ACID [Suspect]
     Active Substance: ASCORBIC ACID
     Route: 065
  141. FERROUS FUMARATE [Suspect]
     Active Substance: FERROUS FUMARATE
     Indication: Product used for unknown indication
     Route: 065
  142. FERROUS FUMARATE [Suspect]
     Active Substance: FERROUS FUMARATE
     Route: 065
  143. FERROUS FUMARATE [Suspect]
     Active Substance: FERROUS FUMARATE
     Route: 065
  144. FERROUS FUMARATE [Suspect]
     Active Substance: FERROUS FUMARATE
     Route: 065
  145. FERROUS FUMARATE [Suspect]
     Active Substance: FERROUS FUMARATE
     Route: 065
  146. FOLIC ACID [Suspect]
     Active Substance: FOLIC ACID
     Indication: Product used for unknown indication
     Route: 065
  147. FOLIC ACID [Suspect]
     Active Substance: FOLIC ACID
     Dosage: 2/WEEK
     Route: 065
  148. FOLIC ACID [Suspect]
     Active Substance: FOLIC ACID
     Route: 065
  149. FOLIC ACID [Suspect]
     Active Substance: FOLIC ACID
     Route: 065
  150. FOLIC ACID [Suspect]
     Active Substance: FOLIC ACID
     Route: 065
  151. FOLIC ACID [Suspect]
     Active Substance: FOLIC ACID
     Route: 065
  152. FOLIC ACID [Suspect]
     Active Substance: FOLIC ACID
     Route: 065
  153. FOLIC ACID [Suspect]
     Active Substance: FOLIC ACID
     Dosage: 2/WEEK
     Route: 065
  154. FOLIC ACID [Suspect]
     Active Substance: FOLIC ACID
     Route: 065
  155. FOLIC ACID [Suspect]
     Active Substance: FOLIC ACID
     Route: 065
  156. FOLIC ACID [Suspect]
     Active Substance: FOLIC ACID
     Route: 065
  157. FOLIC ACID [Suspect]
     Active Substance: FOLIC ACID
     Route: 065
  158. FOLIC ACID [Suspect]
     Active Substance: FOLIC ACID
     Dosage: CYCLICAL
     Route: 065
  159. FOLIC ACID [Suspect]
     Active Substance: FOLIC ACID
     Route: 065
  160. FOLIC ACID [Suspect]
     Active Substance: FOLIC ACID
     Route: 065
  161. FOLIC ACID [Suspect]
     Active Substance: FOLIC ACID
     Route: 065
  162. FOLIC ACID [Suspect]
     Active Substance: FOLIC ACID
     Route: 065
  163. FOLIC ACID [Suspect]
     Active Substance: FOLIC ACID
     Route: 065
  164. HYDROXYCHLOROQUINE SULFATE [Suspect]
     Active Substance: HYDROXYCHLOROQUINE SULFATE
     Indication: Rheumatoid arthritis
     Route: 065
  165. HYDROXYCHLOROQUINE SULFATE [Suspect]
     Active Substance: HYDROXYCHLOROQUINE SULFATE
     Route: 065
  166. HYDROXYCHLOROQUINE SULFATE [Suspect]
     Active Substance: HYDROXYCHLOROQUINE SULFATE
     Route: 065
  167. HYDROXYCHLOROQUINE SULFATE [Suspect]
     Active Substance: HYDROXYCHLOROQUINE SULFATE
     Route: 065
  168. HYDROXYCHLOROQUINE SULFATE [Suspect]
     Active Substance: HYDROXYCHLOROQUINE SULFATE
     Route: 065
  169. HYDROXYCHLOROQUINE SULFATE [Suspect]
     Active Substance: HYDROXYCHLOROQUINE SULFATE
     Route: 065
  170. HYDROXYCHLOROQUINE SULFATE [Suspect]
     Active Substance: HYDROXYCHLOROQUINE SULFATE
     Route: 065
  171. HYDROXYCHLOROQUINE SULFATE [Suspect]
     Active Substance: HYDROXYCHLOROQUINE SULFATE
     Route: 065
  172. HYDROXYCHLOROQUINE SULFATE [Suspect]
     Active Substance: HYDROXYCHLOROQUINE SULFATE
     Route: 065
  173. HYDROXYCHLOROQUINE SULFATE [Suspect]
     Active Substance: HYDROXYCHLOROQUINE SULFATE
     Route: 065
  174. HYDROXYCHLOROQUINE SULFATE [Suspect]
     Active Substance: HYDROXYCHLOROQUINE SULFATE
     Route: 065
  175. HYDROXYCHLOROQUINE SULFATE [Suspect]
     Active Substance: HYDROXYCHLOROQUINE SULFATE
     Route: 065
  176. HYDROXYCHLOROQUINE SULFATE [Suspect]
     Active Substance: HYDROXYCHLOROQUINE SULFATE
     Route: 065
  177. HYDROXYCHLOROQUINE SULFATE [Suspect]
     Active Substance: HYDROXYCHLOROQUINE SULFATE
     Route: 065
  178. HYDROXYCHLOROQUINE SULFATE [Suspect]
     Active Substance: HYDROXYCHLOROQUINE SULFATE
     Route: 065
  179. HYDROXYCHLOROQUINE SULFATE [Suspect]
     Active Substance: HYDROXYCHLOROQUINE SULFATE
     Route: 065
  180. HYDROXYCHLOROQUINE SULFATE [Suspect]
     Active Substance: HYDROXYCHLOROQUINE SULFATE
     Route: 065
  181. HYDROXYCHLOROQUINE SULFATE [Suspect]
     Active Substance: HYDROXYCHLOROQUINE SULFATE
     Route: 065
  182. HYDROXYCHLOROQUINE SULFATE [Suspect]
     Active Substance: HYDROXYCHLOROQUINE SULFATE
     Route: 065
  183. HYDROXYCHLOROQUINE SULFATE [Suspect]
     Active Substance: HYDROXYCHLOROQUINE SULFATE
     Route: 065
  184. HYDROXYCHLOROQUINE SULFATE [Suspect]
     Active Substance: HYDROXYCHLOROQUINE SULFATE
     Route: 065
  185. HYDROXYCHLOROQUINE SULFATE [Suspect]
     Active Substance: HYDROXYCHLOROQUINE SULFATE
     Route: 065
  186. HYDROXYCHLOROQUINE SULFATE [Suspect]
     Active Substance: HYDROXYCHLOROQUINE SULFATE
     Route: 065
  187. HYDROXYCHLOROQUINE SULFATE [Suspect]
     Active Substance: HYDROXYCHLOROQUINE SULFATE
     Route: 065
  188. HYDROXYCHLOROQUINE SULFATE [Suspect]
     Active Substance: HYDROXYCHLOROQUINE SULFATE
     Route: 065
  189. HYDROXYCHLOROQUINE SULFATE [Suspect]
     Active Substance: HYDROXYCHLOROQUINE SULFATE
     Route: 065
  190. PANTOPRAZOLE SODIUM ANHYDROUS [Suspect]
     Active Substance: PANTOPRAZOLE SODIUM ANHYDROUS
     Indication: Product used for unknown indication
     Route: 065
  191. FERROUS FUMARATE\FOLIC ACID [Suspect]
     Active Substance: FERROUS FUMARATE\FOLIC ACID
     Indication: Product used for unknown indication
     Route: 065
  192. FERROUS FUMARATE\FOLIC ACID [Suspect]
     Active Substance: FERROUS FUMARATE\FOLIC ACID
     Dosage: 2/WEEK
     Route: 065
  193. FERROUS FUMARATE\FOLIC ACID [Suspect]
     Active Substance: FERROUS FUMARATE\FOLIC ACID
     Route: 065
  194. FERROUS FUMARATE\FOLIC ACID [Suspect]
     Active Substance: FERROUS FUMARATE\FOLIC ACID
     Route: 065
  195. PANTOPRAZOLE SODIUM [Suspect]
     Active Substance: PANTOPRAZOLE SODIUM
     Indication: Product used for unknown indication
     Route: 065
  196. PANTOPRAZOLE SODIUM [Suspect]
     Active Substance: PANTOPRAZOLE SODIUM
     Route: 065
  197. NAPROXEN [Suspect]
     Active Substance: NAPROXEN
     Indication: Uveitis
     Route: 065
  198. NAPROXEN [Suspect]
     Active Substance: NAPROXEN
     Indication: Juvenile idiopathic arthritis
     Route: 048
  199. NAPROXEN [Suspect]
     Active Substance: NAPROXEN
     Indication: Rheumatoid arthritis
     Route: 048
  200. NAPROXEN [Suspect]
     Active Substance: NAPROXEN
     Route: 048
  201. NAPROXEN [Suspect]
     Active Substance: NAPROXEN
     Route: 048
  202. NAPROXEN [Suspect]
     Active Substance: NAPROXEN
     Route: 065
  203. NAPROXEN [Suspect]
     Active Substance: NAPROXEN
     Route: 048
  204. NAPROXEN [Suspect]
     Active Substance: NAPROXEN
     Route: 065
  205. NAPROXEN [Suspect]
     Active Substance: NAPROXEN
     Route: 048
  206. NAPROXEN [Suspect]
     Active Substance: NAPROXEN
     Route: 048
  207. NAPROXEN [Suspect]
     Active Substance: NAPROXEN
     Route: 048
  208. NAPROXEN [Suspect]
     Active Substance: NAPROXEN
     Route: 048
  209. NAPROXEN [Suspect]
     Active Substance: NAPROXEN
     Route: 048
  210. NAPROXEN [Suspect]
     Active Substance: NAPROXEN
     Route: 048
  211. NAPROXEN [Suspect]
     Active Substance: NAPROXEN
     Route: 065
  212. NAPROXEN [Suspect]
     Active Substance: NAPROXEN
     Route: 065
  213. NAPROXEN [Suspect]
     Active Substance: NAPROXEN
     Route: 065
  214. NAPROXEN [Suspect]
     Active Substance: NAPROXEN
     Route: 065
  215. NAPROXEN [Suspect]
     Active Substance: NAPROXEN
     Route: 048
  216. NAPROXEN [Suspect]
     Active Substance: NAPROXEN
     Route: 048
  217. LEFLUNOMIDE [Suspect]
     Active Substance: LEFLUNOMIDE
     Indication: Rheumatoid arthritis
     Route: 048
  218. LEFLUNOMIDE [Suspect]
     Active Substance: LEFLUNOMIDE
     Route: 048
  219. LEFLUNOMIDE [Suspect]
     Active Substance: LEFLUNOMIDE
     Route: 048
  220. LEFLUNOMIDE [Suspect]
     Active Substance: LEFLUNOMIDE
     Route: 048
  221. LEFLUNOMIDE [Suspect]
     Active Substance: LEFLUNOMIDE
     Route: 048
  222. ATENOLOL [Suspect]
     Active Substance: ATENOLOL
     Indication: Product used for unknown indication
     Route: 048
  223. ATENOLOL [Suspect]
     Active Substance: ATENOLOL
     Route: 048
  224. ATENOLOL [Suspect]
     Active Substance: ATENOLOL
     Route: 048
  225. ATENOLOL [Suspect]
     Active Substance: ATENOLOL
     Route: 065
  226. ATENOLOL [Suspect]
     Active Substance: ATENOLOL
     Route: 048
  227. ATENOLOL [Suspect]
     Active Substance: ATENOLOL
     Route: 065
  228. REMICADE [Suspect]
     Active Substance: INFLIXIMAB
     Indication: Rheumatoid arthritis
     Route: 042
  229. REMICADE [Suspect]
     Active Substance: INFLIXIMAB
     Route: 042
  230. REMICADE [Suspect]
     Active Substance: INFLIXIMAB
     Route: 042
  231. REMICADE [Suspect]
     Active Substance: INFLIXIMAB
     Route: 065
  232. NAPROXEN SODIUM [Suspect]
     Active Substance: NAPROXEN SODIUM
     Indication: Rheumatoid arthritis
     Route: 048
  233. NAPROXEN SODIUM [Suspect]
     Active Substance: NAPROXEN SODIUM
     Indication: Rheumatoid arthritis
     Route: 048
  234. NAPROXEN SODIUM [Suspect]
     Active Substance: NAPROXEN SODIUM
     Route: 048
  235. NAPROXEN SODIUM [Suspect]
     Active Substance: NAPROXEN SODIUM
     Route: 048
  236. NAPROXEN SODIUM [Suspect]
     Active Substance: NAPROXEN SODIUM
     Route: 065
  237. NAPROXEN SODIUM [Suspect]
     Active Substance: NAPROXEN SODIUM
     Route: 048
  238. NAPROXEN SODIUM [Suspect]
     Active Substance: NAPROXEN SODIUM
     Route: 065
  239. NAPROXEN SODIUM [Suspect]
     Active Substance: NAPROXEN SODIUM
     Route: 065
  240. NAPROXEN SODIUM [Suspect]
     Active Substance: NAPROXEN SODIUM
     Route: 065
  241. NAPROXEN SODIUM [Suspect]
     Active Substance: NAPROXEN SODIUM
     Route: 048
  242. NAPROXEN SODIUM [Suspect]
     Active Substance: NAPROXEN SODIUM
     Route: 048
  243. NAPROXEN SODIUM [Suspect]
     Active Substance: NAPROXEN SODIUM
     Route: 048
  244. NAPROXEN SODIUM [Suspect]
     Active Substance: NAPROXEN SODIUM
     Route: 048
  245. NAPROXEN SODIUM [Suspect]
     Active Substance: NAPROXEN SODIUM
     Route: 048
  246. NAPROXEN SODIUM [Suspect]
     Active Substance: NAPROXEN SODIUM
     Route: 065
  247. NAPROXEN SODIUM [Suspect]
     Active Substance: NAPROXEN SODIUM
     Route: 065
  248. NAPROXEN SODIUM [Suspect]
     Active Substance: NAPROXEN SODIUM
     Route: 048
  249. NAPROXEN SODIUM [Suspect]
     Active Substance: NAPROXEN SODIUM
     Route: 048
  250. ETANERCEPT [Suspect]
     Active Substance: ETANERCEPT
     Indication: Rheumatoid arthritis
     Route: 058
  251. FERROUS FUMARATE [Suspect]
     Active Substance: FERROUS FUMARATE
     Indication: Product used for unknown indication
     Route: 065
  252. HYDROXYCHLOROQUINE [Suspect]
     Active Substance: HYDROXYCHLOROQUINE
     Indication: Rheumatoid arthritis
     Route: 065
  253. HYDROXYCHLOROQUINE [Suspect]
     Active Substance: HYDROXYCHLOROQUINE
     Route: 065
  254. HYDROXYCHLOROQUINE [Suspect]
     Active Substance: HYDROXYCHLOROQUINE
     Route: 065
  255. HYDROXYCHLOROQUINE [Suspect]
     Active Substance: HYDROXYCHLOROQUINE
     Route: 065
  256. HYDROXYCHLOROQUINE [Suspect]
     Active Substance: HYDROXYCHLOROQUINE
     Route: 065
  257. HYDROXYCHLOROQUINE [Suspect]
     Active Substance: HYDROXYCHLOROQUINE
     Route: 065
  258. HYDROXYCHLOROQUINE [Suspect]
     Active Substance: HYDROXYCHLOROQUINE
     Route: 048
  259. HYDROXYCHLOROQUINE [Suspect]
     Active Substance: HYDROXYCHLOROQUINE
     Route: 065
  260. PANTOPRAZOLE SODIUM [Suspect]
     Active Substance: PANTOPRAZOLE SODIUM
     Indication: Product used for unknown indication
     Route: 065
  261. PANTOPRAZOLE SODIUM [Suspect]
     Active Substance: PANTOPRAZOLE SODIUM
     Indication: Product used for unknown indication
     Route: 065
  262. PANTOPRAZOLE SODIUM [Suspect]
     Active Substance: PANTOPRAZOLE SODIUM
     Route: 065
  263. PANTOPRAZOLE SODIUM [Suspect]
     Active Substance: PANTOPRAZOLE SODIUM
     Route: 065
  264. PANTOPRAZOLE SODIUM [Suspect]
     Active Substance: PANTOPRAZOLE SODIUM
     Route: 065
  265. PANTOPRAZOLE SODIUM [Suspect]
     Active Substance: PANTOPRAZOLE SODIUM
     Route: 065
  266. PANTOPRAZOLE SODIUM [Suspect]
     Active Substance: PANTOPRAZOLE SODIUM
     Route: 065
  267. PANTOPRAZOLE SODIUM [Suspect]
     Active Substance: PANTOPRAZOLE SODIUM
     Route: 065
  268. FERROUS FUMARATE\FOLIC ACID [Suspect]
     Active Substance: FERROUS FUMARATE\FOLIC ACID
     Indication: Product used for unknown indication
     Route: 065
  269. FERROUS FUMARATE\FOLIC ACID [Suspect]
     Active Substance: FERROUS FUMARATE\FOLIC ACID
     Route: 065
  270. FERROUS FUMARATE\FOLIC ACID [Suspect]
     Active Substance: FERROUS FUMARATE\FOLIC ACID
     Dosage: 2/WEEK
     Route: 065
  271. FERROUS FUMARATE\FOLIC ACID [Suspect]
     Active Substance: FERROUS FUMARATE\FOLIC ACID
     Route: 065
  272. ASCORBIC ACID [Suspect]
     Active Substance: ASCORBIC ACID
     Indication: Product used for unknown indication
     Route: 065
  273. CELECOXIB [Suspect]
     Active Substance: CELECOXIB
     Indication: Arthritis
     Route: 065
  274. CELECOXIB [Suspect]
     Active Substance: CELECOXIB
     Indication: Rheumatoid arthritis
     Route: 048
  275. XELJANZ [Suspect]
     Active Substance: TOFACITINIB CITRATE
     Indication: Rheumatoid arthritis
     Route: 065
  276. ACTEMRA [Suspect]
     Active Substance: TOCILIZUMAB
     Indication: Rheumatoid arthritis
     Route: 065
  277. ACTEMRA [Suspect]
     Active Substance: TOCILIZUMAB
     Route: 042
  278. ACTEMRA [Suspect]
     Active Substance: TOCILIZUMAB
     Route: 065
  279. ACTEMRA [Suspect]
     Active Substance: TOCILIZUMAB
     Route: 065
  280. PANTOPRAZOLE [Suspect]
     Active Substance: PANTOPRAZOLE
     Indication: Rheumatoid arthritis
     Route: 048
  281. PANTOPRAZOLE [Suspect]
     Active Substance: PANTOPRAZOLE
     Route: 065
  282. PANTOPRAZOLE [Suspect]
     Active Substance: PANTOPRAZOLE
     Route: 065
  283. PANTOPRAZOLE [Suspect]
     Active Substance: PANTOPRAZOLE
     Route: 065
  284. PANTOPRAZOLE [Suspect]
     Active Substance: PANTOPRAZOLE
     Route: 065
  285. PREDNISONE [Suspect]
     Active Substance: PREDNISONE
     Indication: Rheumatoid arthritis
     Route: 058
  286. PREDNISONE [Suspect]
     Active Substance: PREDNISONE
     Route: 065
  287. PREDNISONE [Suspect]
     Active Substance: PREDNISONE
     Route: 065
  288. PREDNISONE [Suspect]
     Active Substance: PREDNISONE
     Route: 065
  289. NAPROSYN [Suspect]
     Active Substance: NAPROXEN
     Indication: Uveitis
     Route: 048
  290. NAPROSYN [Suspect]
     Active Substance: NAPROXEN
     Indication: Juvenile idiopathic arthritis
     Route: 048
  291. NAPROSYN [Suspect]
     Active Substance: NAPROXEN
     Route: 048
  292. NAPROSYN [Suspect]
     Active Substance: NAPROXEN
     Route: 048
     Dates: start: 20140119
  293. NAPROSYN [Suspect]
     Active Substance: NAPROXEN
     Route: 048
  294. NAPROSYN [Suspect]
     Active Substance: NAPROXEN
     Route: 048
  295. NAPROSYN [Suspect]
     Active Substance: NAPROXEN
     Route: 048
  296. NAPROSYN [Suspect]
     Active Substance: NAPROXEN
     Route: 065
  297. NAPROSYN [Suspect]
     Active Substance: NAPROXEN
     Route: 048
  298. NAPROSYN [Suspect]
     Active Substance: NAPROXEN
     Route: 065
  299. NAPROSYN [Suspect]
     Active Substance: NAPROXEN
     Route: 065
  300. NAPROSYN [Suspect]
     Active Substance: NAPROXEN
     Route: 065
  301. NAPROSYN [Suspect]
     Active Substance: NAPROXEN
     Route: 065
  302. NAPROSYN [Suspect]
     Active Substance: NAPROXEN
     Route: 048
  303. ERELZI [Suspect]
     Active Substance: ETANERCEPT-SZZS
     Indication: Rheumatoid arthritis
     Route: 058
  304. ERELZI [Suspect]
     Active Substance: ETANERCEPT-SZZS
     Route: 058
  305. ERELZI [Suspect]
     Active Substance: ETANERCEPT-SZZS
     Route: 065
  306. PANTOPRAZOLE [Suspect]
     Active Substance: PANTOPRAZOLE
     Indication: Rheumatoid arthritis
     Route: 048
  307. PANTOPRAZOLE [Suspect]
     Active Substance: PANTOPRAZOLE
     Route: 065
  308. HYDROXYCHLOROQUINE [Suspect]
     Active Substance: HYDROXYCHLOROQUINE
     Indication: Rheumatoid arthritis
     Dosage: 40.0MG UNKNOWN
     Route: 065
  309. HYDROXYCHLOROQUINE [Suspect]
     Active Substance: HYDROXYCHLOROQUINE
     Route: 065
  310. HYDROXYCHLOROQUINE [Suspect]
     Active Substance: HYDROXYCHLOROQUINE
     Route: 065
  311. HYDROXYCHLOROQUINE [Suspect]
     Active Substance: HYDROXYCHLOROQUINE
     Route: 065
  312. HYDROXYCHLOROQUINE [Suspect]
     Active Substance: HYDROXYCHLOROQUINE
     Route: 065
  313. HYDROXYCHLOROQUINE [Suspect]
     Active Substance: HYDROXYCHLOROQUINE
     Route: 065
  314. HYDROXYCHLOROQUINE [Suspect]
     Active Substance: HYDROXYCHLOROQUINE
     Route: 065
  315. HYDROXYCHLOROQUINE [Suspect]
     Active Substance: HYDROXYCHLOROQUINE
     Route: 065
  316. HYDROXYCHLOROQUINE [Suspect]
     Active Substance: HYDROXYCHLOROQUINE
     Route: 065
  317. HYDROXYCHLOROQUINE [Suspect]
     Active Substance: HYDROXYCHLOROQUINE
     Route: 065
  318. HYDROXYCHLOROQUINE [Suspect]
     Active Substance: HYDROXYCHLOROQUINE
     Route: 065
  319. HYDROXYCHLOROQUINE [Suspect]
     Active Substance: HYDROXYCHLOROQUINE
     Route: 065
  320. HYDROXYCHLOROQUINE [Suspect]
     Active Substance: HYDROXYCHLOROQUINE
     Route: 065
  321. HYDROXYCHLOROQUINE [Suspect]
     Active Substance: HYDROXYCHLOROQUINE
     Route: 065
  322. HYDROXYCHLOROQUINE [Suspect]
     Active Substance: HYDROXYCHLOROQUINE
     Route: 065
  323. HYDROXYCHLOROQUINE [Suspect]
     Active Substance: HYDROXYCHLOROQUINE
     Route: 065
  324. HYDROXYCHLOROQUINE [Suspect]
     Active Substance: HYDROXYCHLOROQUINE
     Route: 065
  325. HYDROXYCHLOROQUINE [Suspect]
     Active Substance: HYDROXYCHLOROQUINE
     Route: 065
  326. HYDROXYCHLOROQUINE [Suspect]
     Active Substance: HYDROXYCHLOROQUINE
     Route: 065
  327. HYDROXYCHLOROQUINE [Suspect]
     Active Substance: HYDROXYCHLOROQUINE
     Route: 065
  328. HYDROXYCHLOROQUINE [Suspect]
     Active Substance: HYDROXYCHLOROQUINE
     Route: 065
  329. HYDROXYCHLOROQUINE [Suspect]
     Active Substance: HYDROXYCHLOROQUINE
     Route: 065
  330. HYDROXYCHLOROQUINE [Suspect]
     Active Substance: HYDROXYCHLOROQUINE
     Route: 065
  331. HYDROXYCHLOROQUINE [Suspect]
     Active Substance: HYDROXYCHLOROQUINE
     Route: 065
  332. HYDROXYCHLOROQUINE [Suspect]
     Active Substance: HYDROXYCHLOROQUINE
     Route: 065
  333. HYDROXYCHLOROQUINE [Suspect]
     Active Substance: HYDROXYCHLOROQUINE
     Route: 065
  334. HYDROXYCHLOROQUINE [Suspect]
     Active Substance: HYDROXYCHLOROQUINE
     Route: 065
  335. HYDROXYCHLOROQUINE [Suspect]
     Active Substance: HYDROXYCHLOROQUINE
     Route: 065
  336. HYDROXYCHLOROQUINE [Suspect]
     Active Substance: HYDROXYCHLOROQUINE
     Route: 065
  337. METHOTREXATE [Suspect]
     Active Substance: METHOTREXATE
     Indication: Rheumatoid arthritis
     Route: 065
  338. METHOTREXATE [Suspect]
     Active Substance: METHOTREXATE
     Route: 065
  339. METHOTREXATE [Suspect]
     Active Substance: METHOTREXATE
     Route: 048
  340. METHOTREXATE [Suspect]
     Active Substance: METHOTREXATE
     Route: 048
  341. METHOTREXATE [Suspect]
     Active Substance: METHOTREXATE
     Route: 048
  342. METHOTREXATE [Suspect]
     Active Substance: METHOTREXATE
     Route: 048
  343. METHOTREXATE [Suspect]
     Active Substance: METHOTREXATE
     Route: 048
  344. METHOTREXATE [Suspect]
     Active Substance: METHOTREXATE
     Route: 048
  345. METHOTREXATE [Suspect]
     Active Substance: METHOTREXATE
     Route: 048
  346. METHOTREXATE [Suspect]
     Active Substance: METHOTREXATE
     Route: 048
  347. METHOTREXATE [Suspect]
     Active Substance: METHOTREXATE
     Route: 048
  348. METHOTREXATE [Suspect]
     Active Substance: METHOTREXATE
     Dosage: 2/WEEK
     Route: 048
  349. METHOTREXATE [Suspect]
     Active Substance: METHOTREXATE
     Route: 048
  350. METHOTREXATE [Suspect]
     Active Substance: METHOTREXATE
     Route: 048
  351. METHOTREXATE [Suspect]
     Active Substance: METHOTREXATE
     Route: 048
  352. METHOTREXATE [Suspect]
     Active Substance: METHOTREXATE
     Route: 048
  353. METHOTREXATE [Suspect]
     Active Substance: METHOTREXATE
     Route: 048
  354. METHOTREXATE [Suspect]
     Active Substance: METHOTREXATE
     Route: 048
  355. METHOTREXATE [Suspect]
     Active Substance: METHOTREXATE
     Route: 048
  356. METHOTREXATE [Suspect]
     Active Substance: METHOTREXATE
     Route: 048
  357. METHOTREXATE [Suspect]
     Active Substance: METHOTREXATE
     Route: 013
  358. METHOTREXATE [Suspect]
     Active Substance: METHOTREXATE
     Route: 048
  359. METHOTREXATE [Suspect]
     Active Substance: METHOTREXATE
     Route: 048
  360. METHOTREXATE [Suspect]
     Active Substance: METHOTREXATE
     Route: 065
  361. METHOTREXATE [Suspect]
     Active Substance: METHOTREXATE
     Route: 065
  362. METHOTREXATE [Suspect]
     Active Substance: METHOTREXATE
     Route: 048
  363. METHOTREXATE [Suspect]
     Active Substance: METHOTREXATE
     Route: 048
  364. METHOTREXATE [Suspect]
     Active Substance: METHOTREXATE
     Route: 048
  365. METHOTREXATE [Suspect]
     Active Substance: METHOTREXATE
     Route: 048
  366. METHOTREXATE [Suspect]
     Active Substance: METHOTREXATE
     Route: 048
  367. METHOTREXATE [Suspect]
     Active Substance: METHOTREXATE
     Route: 048
  368. METHOTREXATE [Suspect]
     Active Substance: METHOTREXATE
     Route: 048
  369. METHOTREXATE [Suspect]
     Active Substance: METHOTREXATE
     Route: 048
  370. METHOTREXATE [Suspect]
     Active Substance: METHOTREXATE
     Route: 048
  371. METHOTREXATE [Suspect]
     Active Substance: METHOTREXATE
     Route: 048
  372. METHOTREXATE [Suspect]
     Active Substance: METHOTREXATE
     Route: 048
  373. METHOTREXATE [Suspect]
     Active Substance: METHOTREXATE
     Route: 048
  374. METHOTREXATE [Suspect]
     Active Substance: METHOTREXATE
     Route: 048
  375. METHOTREXATE [Suspect]
     Active Substance: METHOTREXATE
     Route: 048
  376. METHOTREXATE [Suspect]
     Active Substance: METHOTREXATE
     Route: 048
  377. METHOTREXATE [Suspect]
     Active Substance: METHOTREXATE
     Route: 048
  378. METHOTREXATE [Suspect]
     Active Substance: METHOTREXATE
     Route: 048
  379. METHOTREXATE [Suspect]
     Active Substance: METHOTREXATE
     Route: 048
  380. METHOTREXATE [Suspect]
     Active Substance: METHOTREXATE
     Route: 013
  381. METHOTREXATE [Suspect]
     Active Substance: METHOTREXATE
     Route: 048
  382. METHOTREXATE [Suspect]
     Active Substance: METHOTREXATE
     Route: 048
  383. ATENOLOL AND CHLORTHALIDONE [Suspect]
     Active Substance: ATENOLOL\CHLORTHALIDONE
     Indication: Rheumatoid arthritis
     Route: 065
  384. ATENOLOL AND CHLORTHALIDONE [Suspect]
     Active Substance: ATENOLOL\CHLORTHALIDONE
     Route: 065
  385. HYDROXYCHLOROQUINE DIPHOSPHATE [Suspect]
     Active Substance: HYDROXYCHLOROQUINE DIPHOSPHATE
     Route: 065
  386. HYDROXYCHLOROQUINE DIPHOSPHATE [Suspect]
     Active Substance: HYDROXYCHLOROQUINE DIPHOSPHATE
     Route: 065
  387. HYDROXYCHLOROQUINE DIPHOSPHATE [Suspect]
     Active Substance: HYDROXYCHLOROQUINE DIPHOSPHATE
     Route: 065
  388. HYDROXYCHLOROQUINE DIPHOSPHATE [Suspect]
     Active Substance: HYDROXYCHLOROQUINE DIPHOSPHATE
     Route: 065
  389. HYDROXYCHLOROQUINE DIPHOSPHATE [Suspect]
     Active Substance: HYDROXYCHLOROQUINE DIPHOSPHATE
     Route: 065
  390. HYDROXYCHLOROQUINE DIPHOSPHATE [Suspect]
     Active Substance: HYDROXYCHLOROQUINE DIPHOSPHATE
     Route: 065
  391. HYDROXYCHLOROQUINE DIPHOSPHATE [Suspect]
     Active Substance: HYDROXYCHLOROQUINE DIPHOSPHATE
     Route: 065
  392. HYDROXYCHLOROQUINE DIPHOSPHATE [Suspect]
     Active Substance: HYDROXYCHLOROQUINE DIPHOSPHATE
     Route: 065
  393. VITAMIN C [Suspect]
     Active Substance: ASCORBIC ACID
     Indication: Product used for unknown indication
     Route: 065
  394. TOCILIZUMAB [Suspect]
     Active Substance: TOCILIZUMAB
     Indication: Rheumatoid arthritis
     Route: 065
  395. MOXIFLOXACIN HYDROCHLORIDE [Suspect]
     Active Substance: MOXIFLOXACIN HYDROCHLORIDE
     Indication: Rheumatoid arthritis
     Route: 058
  396. DICLOFENAC SODIUM [Suspect]
     Active Substance: DICLOFENAC SODIUM
     Indication: Rheumatoid arthritis
     Route: 065
  397. CELEBREX [Concomitant]
     Active Substance: CELECOXIB
     Indication: Rheumatoid arthritis
     Route: 048
  398. CELEBREX [Concomitant]
     Active Substance: CELECOXIB
     Route: 048
  399. CELEBREX [Concomitant]
     Active Substance: CELECOXIB
     Route: 065
  400. CELEBREX [Concomitant]
     Active Substance: CELECOXIB
     Route: 048
  401. CELEBREX [Concomitant]
     Active Substance: CELECOXIB
     Route: 048
  402. CELEBREX [Concomitant]
     Active Substance: CELECOXIB
     Route: 065
  403. CELEBREX [Concomitant]
     Active Substance: CELECOXIB
     Route: 065
  404. CELEBREX [Concomitant]
     Active Substance: CELECOXIB
     Route: 048
  405. CELEBREX [Concomitant]
     Active Substance: CELECOXIB
     Route: 048
  406. PREDNISONE [Concomitant]
     Active Substance: PREDNISONE
     Indication: Rheumatoid arthritis
     Route: 048
  407. PREDNISONE [Concomitant]
     Active Substance: PREDNISONE
     Route: 065
  408. PREDNISONE [Concomitant]
     Active Substance: PREDNISONE
     Route: 065
  409. PREDNISONE [Concomitant]
     Active Substance: PREDNISONE
     Route: 065
  410. CELECOXIB [Concomitant]
     Active Substance: CELECOXIB
     Indication: Rheumatoid arthritis
     Route: 048
  411. CELECOXIB [Concomitant]
     Active Substance: CELECOXIB
     Indication: Arthritis
     Route: 048
  412. CELECOXIB [Concomitant]
     Active Substance: CELECOXIB
     Route: 048
  413. CELECOXIB [Concomitant]
     Active Substance: CELECOXIB
     Route: 048
  414. CELECOXIB [Concomitant]
     Active Substance: CELECOXIB
     Route: 065
  415. AVAPRO [Concomitant]
     Active Substance: IRBESARTAN
     Route: 065
  416. SIMPONI [Concomitant]
     Active Substance: GOLIMUMAB
     Route: 065
  417. HUMALOG [Concomitant]
     Active Substance: INSULIN LISPRO
     Route: 065
  418. HUMALOG [Concomitant]
     Active Substance: INSULIN LISPRO
     Route: 065
  419. INSULIN PORK\INSULIN PURIFIED PORK [Concomitant]
     Active Substance: INSULIN PORK\INSULIN PURIFIED PORK
     Route: 065
  420. LANTUS [Concomitant]
     Active Substance: INSULIN GLARGINE
     Route: 065
  421. METFORMIN HYDROCHLORIDE [Concomitant]
     Active Substance: METFORMIN HYDROCHLORIDE
     Route: 065
  422. ASPIRIN [Concomitant]
     Active Substance: ASPIRIN
     Route: 065

REACTIONS (39)
  - Drug ineffective [Unknown]
  - Overdose [Unknown]
  - Inappropriate schedule of product administration [Unknown]
  - Off label use [Unknown]
  - Contraindicated product administered [Not Recovered/Not Resolved]
  - Treatment failure [Not Recovered/Not Resolved]
  - C-reactive protein increased [Unknown]
  - Rheumatoid arthritis [Unknown]
  - Haematocrit decreased [Unknown]
  - Haemoglobin decreased [Unknown]
  - Red blood cell count decreased [Unknown]
  - Joint swelling [Unknown]
  - Musculoskeletal pain [Unknown]
  - Pain in extremity [Unknown]
  - Peripheral swelling [Unknown]
  - Rash [Unknown]
  - Red blood cell sedimentation rate abnormal [Unknown]
  - C-reactive protein abnormal [Unknown]
  - Drug hypersensitivity [Unknown]
  - Drug-induced liver injury [Unknown]
  - Disability [Unknown]
  - Arthropathy [Not Recovered/Not Resolved]
  - Fall [Not Recovered/Not Resolved]
  - Femur fracture [Not Recovered/Not Resolved]
  - Impaired healing [Not Recovered/Not Resolved]
  - Multiple fractures [Not Recovered/Not Resolved]
  - Osteoporosis [Not Recovered/Not Resolved]
  - Pain [Not Recovered/Not Resolved]
  - Synovitis [Not Recovered/Not Resolved]
  - Fatigue [Not Recovered/Not Resolved]
  - Arthralgia [Unknown]
  - Keratitis [Not Recovered/Not Resolved]
  - Hypersensitivity [Not Recovered/Not Resolved]
  - Inflammatory marker increased [Not Recovered/Not Resolved]
  - Drug intolerance [Not Recovered/Not Resolved]
  - Liver disorder [Unknown]
  - Musculoskeletal stiffness [Unknown]
  - Myalgia [Unknown]
  - Rheumatoid lung [Unknown]
